FAERS Safety Report 8694024 (Version 11)
Quarter: 2015Q1

REPORT INFORMATION
  Report Type: Spontaneous
  Country: JP (occurrence: JP)
  Receive Date: 20120731
  Receipt Date: 20150123
  Transmission Date: 20150721
  Serious: Yes (Hospitalization, Other)
  Sender: FDA-Public Use
  Company Number: PHHY2012JP064559

PATIENT
  Age: 55 Year
  Sex: Female
  Weight: 55 kg

DRUGS (21)
  1. BIOFERMIN R [Concomitant]
     Active Substance: BACILLUS SUBTILIS\LACTOBACILLUS ACIDOPHILUS\STREPTOCOCCUS FAECAIS
     Indication: PROPHYLAXIS
     Dosage: 3 DF, UNK
     Route: 048
     Dates: start: 20130502
  2. MEVALOTIN [Concomitant]
     Active Substance: PRAVASTATIN SODIUM
     Indication: PRODUCT USED FOR UNKNOWN INDICATION
     Dosage: 10 MG, UNK
     Route: 048
  3. ASTOMIN [Concomitant]
     Active Substance: DIMEMORFAN
     Indication: PRODUCT USED FOR UNKNOWN INDICATION
     Dosage: 10 MG, UNK
     Route: 048
     Dates: start: 20130322, end: 20130521
  4. MYSLEE [Concomitant]
     Active Substance: ZOLPIDEM TARTRATE
     Indication: INSOMNIA
     Route: 048
     Dates: start: 20130520, end: 20130521
  5. ROHYPNOL [Concomitant]
     Active Substance: FLUNITRAZEPAM
     Indication: INSOMNIA
     Dosage: 1 MG, UNK
     Route: 065
     Dates: start: 20130522, end: 20130616
  6. SANDOSTATIN [Suspect]
     Active Substance: OCTREOTIDE ACETATE
     Indication: PANCREATIC NEUROENDOCRINE TUMOUR
     Route: 058
     Dates: start: 20110226, end: 20110309
  7. SANDOSTATIN LAR DEPOT [Suspect]
     Active Substance: OCTREOTIDE ACETATE
     Indication: PANCREATIC NEUROENDOCRINE TUMOUR
     Route: 030
     Dates: start: 20110310, end: 20111222
  8. WYPAX [Concomitant]
     Active Substance: LORAZEPAM
     Indication: INSOMNIA
     Route: 048
     Dates: start: 20130512, end: 20130521
  9. DIAZOXIDE [Concomitant]
     Active Substance: DIAZOXIDE
     Indication: PRODUCT USED FOR UNKNOWN INDICATION
     Route: 065
  10. AFINITOR [Suspect]
     Active Substance: EVEROLIMUS
     Dosage: 5 MG, QOD
     Route: 048
     Dates: start: 20130126, end: 20130516
  11. CALONAL [Concomitant]
     Active Substance: ACETAMINOPHEN
     Indication: PROPHYLAXIS
     Route: 048
     Dates: start: 20121218, end: 20130308
  12. CALONAL [Concomitant]
     Active Substance: ACETAMINOPHEN
     Dosage: 1200 MG, UNK
     Route: 048
     Dates: end: 20130308
  13. PRIMPERAN [Concomitant]
     Active Substance: METOCLOPRAMIDE HYDROCHLORIDE
     Route: 065
     Dates: start: 20130427, end: 20130521
  14. AFINITOR [Suspect]
     Active Substance: EVEROLIMUS
     Dosage: 5 MG, QD
     Route: 048
     Dates: start: 20120403, end: 20130125
  15. SENNOSIDE [Concomitant]
     Active Substance: SENNOSIDES
     Indication: CONSTIPATION
     Dosage: 12 MG, UNK
     Route: 048
     Dates: start: 20130429, end: 20130430
  16. KANAMYCIN [Concomitant]
     Active Substance: KANAMYCIN\KANAMYCIN A SULFATE
     Indication: PROPHYLAXIS
     Dosage: 6 DF, UNK
     Route: 048
     Dates: start: 20130502
  17. CEFMETAZON [Concomitant]
     Active Substance: CEFMETAZOLE SODIUM
     Indication: INFECTION
     Dosage: 2 G, UNK
     Route: 065
     Dates: start: 20130501, end: 20130506
  18. RINDERON V [Concomitant]
     Active Substance: BETAMETHASONE VALERATE
     Indication: INSOMNIA
     Dosage: 4 MG, UNK
     Route: 065
     Dates: start: 20130516, end: 20130616
  19. MIDAZOLAM [Concomitant]
     Active Substance: MIDAZOLAM\MIDAZOLAM HYDROCHLORIDE
     Indication: INSOMNIA
     Dosage: 10 MG, UNK
     Route: 065
     Dates: start: 20130522, end: 20130616
  20. AFINITOR [Suspect]
     Active Substance: EVEROLIMUS
     Indication: PANCREATIC NEUROENDOCRINE TUMOUR
     Dosage: 10 MG, QD (IN 2 DIVIDED DOSES)
     Route: 048
     Dates: start: 20111228, end: 20120402
  21. PRIMPERAN [Concomitant]
     Active Substance: METOCLOPRAMIDE HYDROCHLORIDE
     Indication: DECREASED APPETITE
     Dosage: 15 MG, UNK
     Route: 048
     Dates: start: 20130501, end: 20130516

REACTIONS (20)
  - Portal vein thrombosis [Unknown]
  - Interstitial lung disease [Recovered/Resolved]
  - Hypercholesterolaemia [Unknown]
  - Glycosylated haemoglobin increased [Recovered/Resolved]
  - Headache [Unknown]
  - Bacterial translocation [Unknown]
  - Dyspnoea [Unknown]
  - Cardiac failure [Not Recovered/Not Resolved]
  - Ejection fraction decreased [Unknown]
  - Protein urine [Not Recovered/Not Resolved]
  - Pyrexia [Not Recovered/Not Resolved]
  - Hyperlipidaemia [Unknown]
  - Palpitations [Recovered/Resolved]
  - Stomatitis [Recovered/Resolved]
  - Hepatic encephalopathy [Not Recovered/Not Resolved]
  - Hypoglycaemic coma [Unknown]
  - Malignant neoplasm progression [Not Recovered/Not Resolved]
  - Hyperglycaemia [Recovered/Resolved]
  - Supraventricular tachycardia [Recovering/Resolving]
  - Dizziness [Unknown]

NARRATIVE: CASE EVENT DATE: 20120106
